FAERS Safety Report 14266952 (Version 1)
Quarter: 2017Q4

REPORT INFORMATION
  Report Type: Spontaneous
  Country: DE (occurrence: DE)
  Receive Date: 20171211
  Receipt Date: 20171211
  Transmission Date: 20180321
  Serious: Yes (Life-Threatening, Hospitalization, Disabling, Other)
  Sender: FDA-Public Use
  Company Number: DE-SUN PHARMACEUTICAL INDUSTRIES LTD-2017RR-156395

PATIENT
  Sex: Female
  Weight: 70 kg

DRUGS (3)
  1. ATORVASTATIN [Suspect]
     Active Substance: ATORVASTATIN
     Indication: HYPERLIPIDAEMIA
     Dosage: 40 MG
     Route: 048
     Dates: start: 20130325, end: 20130401
  2. INEGY [Suspect]
     Active Substance: EZETIMIBE\SIMVASTATIN
     Indication: HYPERLIPIDAEMIA
     Dosage: 1 DF, (40 MG EZE, 10 MG SIM)
     Route: 048
     Dates: start: 20120906, end: 20120911
  3. LOCOL [Suspect]
     Active Substance: FLUVASTATIN SODIUM
     Indication: HYPERLIPIDAEMIA
     Dosage: 80 MG
     Route: 048
     Dates: start: 20130908, end: 20170913

REACTIONS (2)
  - Myalgia [Recovered/Resolved]
  - Mobility decreased [Recovered/Resolved]
